FAERS Safety Report 23290315 (Version 1)
Quarter: 2023Q4

REPORT INFORMATION
  Report Type: Other
  Country: AU (occurrence: None)
  Receive Date: 20231213
  Receipt Date: 20231213
  Transmission Date: 20240109
  Serious: Yes (Other)
  Sender: FDA-Public Use
  Company Number: AU-ROCHE-3473891

PATIENT
  Age: 47 Year
  Sex: Female

DRUGS (4)
  1. OCRELIZUMAB [Suspect]
     Active Substance: OCRELIZUMAB
     Indication: Multiple sclerosis
     Dosage: ONE FULL DOSE
     Route: 042
     Dates: start: 201805
  2. NATALIZUMAB [Concomitant]
     Active Substance: NATALIZUMAB
  3. FINGOLIMOD [Concomitant]
     Active Substance: FINGOLIMOD
  4. CLADRIBINE [Concomitant]
     Active Substance: CLADRIBINE

REACTIONS (1)
  - Febrile neutropenia [Recovered/Resolved]
